FAERS Safety Report 9789267 (Version 1)
Quarter: 2013Q4

REPORT INFORMATION
  Report Type: Spontaneous
  Country: TR (occurrence: TR)
  Receive Date: 20131230
  Receipt Date: 20131230
  Transmission Date: 20140711
  Serious: Yes (Life-Threatening, Hospitalization, Other)
  Sender: FDA-Public Use
  Company Number: TR-WATSON-2013-23657

PATIENT
  Age: 21 Year
  Sex: Male

DRUGS (4)
  1. ISONIAZID (WATSON LABORATORIES) [Suspect]
     Indication: TUBERCULOSIS
     Dosage: 1200 MG, TOTAL
     Route: 048
  2. ISONIAZID (WATSON LABORATORIES) [Suspect]
     Indication: SUICIDE ATTEMPT
     Dosage: 300 MG, UNK
     Route: 065
  3. RIFAMPICIN [Concomitant]
     Indication: TUBERCULOSIS
     Dosage: 600 MG, UNK
     Route: 065
  4. ETHANOL [Concomitant]
     Indication: PRODUCT USED FOR UNKNOWN INDICATION
     Dosage: 500 ML, 5% ETHANOL
     Route: 048

REACTIONS (12)
  - Grand mal convulsion [Recovered/Resolved]
  - Coma [Recovered/Resolved]
  - Metabolic acidosis [Recovered/Resolved]
  - Vomiting [Recovered/Resolved]
  - Nausea [Recovered/Resolved]
  - Toxicity to various agents [Recovered/Resolved]
  - Suicide attempt [Recovered/Resolved]
  - Overdose [Recovered/Resolved]
  - Aspartate aminotransferase increased [Recovered/Resolved]
  - Alanine aminotransferase increased [Recovered/Resolved]
  - Blood lactate dehydrogenase increased [Recovered/Resolved]
  - Blood creatine phosphokinase increased [Recovered/Resolved]
